FAERS Safety Report 8591860-1 (Version None)
Quarter: 2012Q3

REPORT INFORMATION
  Report Type: 
  Country: None (occurrence: None)
  Receive Date: 20120814
  Receipt Date: 20120810
  Transmission Date: 20120928
  Serious: Yes (Other)
  Sender: FDA-Public Use
  Company Number: PHHY2010JP26351

PATIENT
  Age: 43 Year
  Sex: Female

DRUGS (1)
  1. ZOMETA [Suspect]
     Indication: METASTASES TO BONE
     Dosage: 4 MG, UNK
     Route: 042
     Dates: start: 20060801

REACTIONS (4)
  - ORAL CAVITY FISTULA [None]
  - OSTEONECROSIS OF JAW [None]
  - ORAL BACTERIAL INFECTION [None]
  - EXPOSED BONE IN JAW [None]
